FAERS Safety Report 25399628 (Version 1)
Quarter: 2025Q2

REPORT INFORMATION
  Report Type: Spontaneous
  Country: US (occurrence: US)
  Receive Date: 20250605
  Receipt Date: 20250605
  Transmission Date: 20250717
  Serious: No
  Sender: VIIV
  Company Number: US-VIIV HEALTHCARE-US2025AMR070041

PATIENT
  Sex: Male

DRUGS (1)
  1. DOVATO [Suspect]
     Active Substance: DOLUTEGRAVIR SODIUM\LAMIVUDINE
     Indication: HIV infection
     Dates: start: 202501

REACTIONS (5)
  - Muscular weakness [Not Recovered/Not Resolved]
  - Sciatica [Not Recovered/Not Resolved]
  - Dry mouth [Not Recovered/Not Resolved]
  - Throat irritation [Not Recovered/Not Resolved]
  - Speech disorder [Not Recovered/Not Resolved]

NARRATIVE: CASE EVENT DATE: 20250101
